FAERS Safety Report 9239668 (Version 1)
Quarter: 2013Q2

REPORT INFORMATION
  Report Type: Report from Study
  Country: US (occurrence: US)
  Receive Date: 20130418
  Receipt Date: 20130418
  Transmission Date: 20140414
  Serious: No
  Sender: FDA-Public Use
  Company Number: US-VERTEX PHARMACEUTICALS INC.-2013-005016

PATIENT
  Age: 54 Year
  Sex: Female
  Weight: 109 kg

DRUGS (7)
  1. VX-950 (TELAPREVIR) [Suspect]
     Indication: HEPATITIS C
     Dosage: 2 DF, TID
     Route: 048
     Dates: start: 2013
  2. RIBASPHERE [Suspect]
     Indication: HEPATITIS C
     Dosage: 600 MG, BID
     Dates: start: 2013
  3. PEGASYS [Suspect]
     Indication: HEPATITIS C
     Dosage: 180 ?G, QW
     Route: 058
     Dates: start: 2013
  4. LEXAPRO [Concomitant]
     Dosage: 10 MG, QD
  5. AMBIEN [Concomitant]
     Dosage: 10 MG, QD
  6. SYNTHROID [Concomitant]
     Dosage: 25 ?G, QD
  7. ESTRADIOL [Concomitant]
     Dosage: 0.5 MG, QD

REACTIONS (4)
  - Dyspnoea [Unknown]
  - Insomnia [Unknown]
  - Cough [Unknown]
  - Fatigue [Unknown]
